FAERS Safety Report 6258506-9 (Version None)
Quarter: 2009Q3

REPORT INFORMATION
  Report Type: 
  Country: None (occurrence: None)
  Receive Date: 20090707
  Receipt Date: 20090626
  Transmission Date: 20100115
  Serious: Yes (Hospitalization)
  Sender: FDA-Public Use
  Company Number: DE-BIOGENIDEC-2009BI001121

PATIENT
  Age: 56 Year
  Sex: Male
  Weight: 72 kg

DRUGS (2)
  1. TYSABRI [Suspect]
     Indication: MULTIPLE SCLEROSIS
     Route: 042
     Dates: start: 20070612, end: 20080828
  2. TYSABRI [Suspect]
     Dates: start: 20090301

REACTIONS (1)
  - ANAL FISTULA [None]
